FAERS Safety Report 7103771-9 (Version None)
Quarter: 2010Q4

REPORT INFORMATION
  Report Type: 
  Country: None (occurrence: None)
  Receive Date: 20101115
  Receipt Date: 20101103
  Transmission Date: 20110411
  Serious: Yes (Death)
  Sender: FDA-Public Use
  Company Number: PL-ROCHE-723846

PATIENT
  Sex: Female
  Weight: 68 kg

DRUGS (31)
  1. TOCILIZUMAB [Suspect]
     Indication: RHEUMATOID ARTHRITIS
     Dosage: FORM: INFUSION
     Route: 042
     Dates: start: 20061128, end: 20070807
  2. TOCILIZUMAB [Suspect]
     Route: 042
     Dates: start: 20070904
  3. TOCILIZUMAB [Suspect]
     Route: 042
     Dates: start: 20100511
  4. TOCILIZUMAB [Suspect]
     Route: 042
     Dates: start: 20100608
  5. TOCILIZUMAB [Suspect]
     Route: 042
     Dates: start: 20100707, end: 20100810
  6. PLACEBO [Suspect]
     Indication: RHEUMATOID ARTHRITIS
     Dosage: FORM: INFUSION
     Route: 042
     Dates: start: 20060808, end: 20061103
  7. METHOTREXATE [Suspect]
     Indication: RHEUMATOID ARTHRITIS
     Dosage: DOSE AND FREQUENCY: NOT REPORTED
     Route: 065
     Dates: end: 20080101
  8. PREDNISONE [Concomitant]
     Dates: start: 20100414, end: 20100830
  9. PANTOPRAZOLE [Concomitant]
     Dates: start: 20100810, end: 20100831
  10. POTASSIUM CHLORIDE [Concomitant]
     Dates: start: 20100819, end: 20100828
  11. ESPUMISAN [Concomitant]
     Dates: start: 20100823, end: 20100830
  12. SULFASALAZINE [Concomitant]
     Dates: end: 20080101
  13. CYCLOSPORINE [Concomitant]
     Dates: end: 20080101
  14. ENCORTON [Concomitant]
  15. CEFTRIAXON [Concomitant]
     Dates: start: 20100830, end: 20100831
  16. SIMETHICONE [Concomitant]
     Dosage: DRUG: SIMETICONUM
     Dates: start: 20100823, end: 20100826
  17. SPIRONOLACTONE [Concomitant]
     Route: 048
     Dates: start: 20100823, end: 20100823
  18. SPIRONOLACTONE [Concomitant]
     Route: 048
     Dates: start: 20100828, end: 20100828
  19. SPIRONOLACTONE [Concomitant]
     Route: 048
     Dates: start: 20100829, end: 20100830
  20. SPIRONOLACTONE [Concomitant]
     Dosage: ROUTE: INTRAOSSEOUS (IO) ROUTE
     Route: 050
     Dates: start: 20100830, end: 20100831
  21. LACTULOSUM [Concomitant]
     Dosage: PRN
     Dates: start: 20100828, end: 20100828
  22. FUROSEMIDUM [Concomitant]
     Dates: start: 20100828, end: 20100828
  23. FUROSEMIDUM [Concomitant]
     Dates: start: 20100829, end: 20100829
  24. FUROSEMIDUM [Concomitant]
     Dosage: TDD: 10 UG/N
     Dates: start: 20100830, end: 20100831
  25. ALBUMIN (HUMAN) [Concomitant]
     Dosage: DRUG: ALBUMIN 20%
     Dates: start: 20100829, end: 20100829
  26. METOCLOPRAMIDE [Concomitant]
     Dates: start: 20100829, end: 20100829
  27. METOCLOPRAMIDE [Concomitant]
     Dates: start: 20100830, end: 20100831
  28. DOPAMINE HYDROCHLORIDE [Concomitant]
     Dosage: TDD: 8ML/HOUR
     Route: 042
     Dates: start: 20100830, end: 20100831
  29. HYDROCORTISON [Concomitant]
     Dates: start: 20100830, end: 20100831
  30. PLASMA [Concomitant]
     Dates: start: 20100830, end: 20100830
  31. PETHIDINE [Concomitant]
     Dosage: DRUG: PETYDINI
     Dates: start: 20100830, end: 20100830

REACTIONS (3)
  - ACUTE HEPATIC FAILURE [None]
  - HEPATIC VEIN THROMBOSIS [None]
  - PORTAL VEIN THROMBOSIS [None]
